FAERS Safety Report 9678802 (Version 1)
Quarter: 2013Q4

REPORT INFORMATION
  Report Type: Report from Study
  Country: US (occurrence: US)
  Receive Date: 20131108
  Receipt Date: 20131108
  Transmission Date: 20140711
  Serious: Yes (Other)
  Sender: FDA-Public Use
  Company Number: US-GLAXOSMITHKLINE-A1048714A

PATIENT
  Sex: 0

DRUGS (1)
  1. FLOVENT [Suspect]
     Indication: ASTHMA

REACTIONS (1)
  - Candida infection [Unknown]
